FAERS Safety Report 8218702-8 (Version None)
Quarter: 2012Q1

REPORT INFORMATION
  Report Type: 
  Country: None (occurrence: None)
  Receive Date: 20120319
  Receipt Date: 20120312
  Transmission Date: 20120608
  Serious: Yes (Hospitalization)
  Sender: FDA-Public Use
  Company Number: PHEH2012US005719

PATIENT
  Age: 40 Year
  Sex: Female

DRUGS (1)
  1. GILENYA [Suspect]
     Indication: MULTIPLE SCLEROSIS
     Dosage: 0.5 MG, QD
     Route: 048

REACTIONS (7)
  - DYSPNOEA [None]
  - PRESYNCOPE [None]
  - WEIGHT INCREASED [None]
  - RESPIRATION ABNORMAL [None]
  - PARAESTHESIA [None]
  - MULTIPLE SCLEROSIS [None]
  - HYPOAESTHESIA [None]
